FAERS Safety Report 26140514 (Version 1)
Quarter: 2025Q4

REPORT INFORMATION
  Report Type: Spontaneous
  Country: US (occurrence: US)
  Receive Date: 20251210
  Receipt Date: 20251210
  Transmission Date: 20260118
  Serious: No
  Sender: SANOFI AVENTIS
  Company Number: US-SA-2025SA367134

PATIENT
  Sex: Female
  Weight: 47.27 kg

DRUGS (4)
  1. DUPIXENT [Suspect]
     Active Substance: DUPILUMAB
     Indication: Dermatitis atopic
     Dosage: 200 MG, QOW
     Route: 058
  2. TACROLIMUS [Concomitant]
     Active Substance: TACROLIMUS
     Dosage: UNK
  3. BETAMETHASONE DIPROPIONATE [Concomitant]
     Active Substance: BETAMETHASONE DIPROPIONATE
     Dosage: UNK
  4. EPIPEN [Concomitant]
     Active Substance: EPINEPHRINE
     Dosage: UNK

REACTIONS (6)
  - Initial insomnia [Unknown]
  - Nasopharyngitis [Unknown]
  - Dermatitis atopic [Unknown]
  - Erythema [Unknown]
  - Pruritus [Unknown]
  - Therapeutic response decreased [Unknown]
